FAERS Safety Report 9188895 (Version 2)
Quarter: 2013Q2

REPORT INFORMATION
  Report Type: Spontaneous
  Country: US (occurrence: US)
  Receive Date: 20130326
  Receipt Date: 20130409
  Transmission Date: 20140414
  Serious: Yes (Other)
  Sender: FDA-Public Use
  Company Number: CHPA2013US005109

PATIENT
  Age: 59 Year
  Sex: Female

DRUGS (2)
  1. VOLTAREN GEL [Suspect]
     Indication: MUSCULOSKELETAL PAIN
     Dosage: 2 G, QID
     Route: 061
  2. VOLTAREN GEL [Suspect]
     Indication: NECK PAIN

REACTIONS (10)
  - Cardiomegaly [Recovered/Resolved]
  - Loss of consciousness [Recovered/Resolved]
  - Lung disorder [Recovered/Resolved]
  - Nephrolithiasis [Recovered/Resolved]
  - Fluid retention [Recovered/Resolved]
  - Sjogren^s syndrome [Recovered/Resolved]
  - Musculoskeletal pain [Recovered/Resolved]
  - Condition aggravated [Recovered/Resolved]
  - Off label use [Unknown]
  - Drug administered at inappropriate site [Unknown]
